FAERS Safety Report 7129362-1 (Version None)
Quarter: 2010Q4

REPORT INFORMATION
  Report Type: 
  Country: None (occurrence: None)
  Receive Date: 20101130
  Receipt Date: 20101117
  Transmission Date: 20110411
  Serious: No
  Sender: FDA-Public Use
  Company Number: US-PFIZER INC-2010154205

PATIENT
  Sex: Male
  Weight: 81.6 kg

DRUGS (4)
  1. EFFEXOR XR [Suspect]
     Indication: GENERALISED ANXIETY DISORDER
     Dosage: 150 MG, 1X/DAY
     Dates: end: 20100101
  2. EFFEXOR XR [Suspect]
     Dosage: 300 MG, 1X/DAY
  3. VENLAFAXINE HCL [Suspect]
     Indication: ANXIETY
     Dosage: UNK
     Dates: start: 20100101, end: 20101001
  4. PROZAC [Suspect]
     Indication: ANXIETY
     Dosage: 20 MG, 1X/DAY
     Dates: start: 20100901

REACTIONS (6)
  - DISTURBANCE IN ATTENTION [None]
  - DIZZINESS [None]
  - DRUG INEFFECTIVE [None]
  - HEADACHE [None]
  - VISION BLURRED [None]
  - WITHDRAWAL SYNDROME [None]
